FAERS Safety Report 21245074 (Version 1)
Quarter: 2022Q3

REPORT INFORMATION
  Report Type: Report from Study
  Country: CO (occurrence: CO)
  Receive Date: 20220823
  Receipt Date: 20220823
  Transmission Date: 20221027
  Serious: Yes (Other)
  Sender: FDA-Public Use
  Company Number: CO-ALLERGAN-2226729US

PATIENT
  Sex: Female
  Weight: 68 kg

DRUGS (2)
  1. BOTULINUM TOXIN TYPE A [Suspect]
     Active Substance: BOTULINUM TOXIN TYPE A
     Indication: Facial spasm
     Dosage: 100 UNITS, SINGLE
     Route: 030
     Dates: start: 20220729, end: 20220729
  2. BOTULINUM TOXIN TYPE A [Suspect]
     Active Substance: BOTULINUM TOXIN TYPE A
     Indication: Dystonia
     Dosage: 100 UNITS, SINGLE
     Route: 030
     Dates: start: 20210709, end: 20210709

REACTIONS (7)
  - Paraesthesia [Not Recovered/Not Resolved]
  - Facial paralysis [Recovering/Resolving]
  - Eye swelling [Recovering/Resolving]
  - Blepharospasm [Recovering/Resolving]
  - Mephisto sign [Recovered/Resolved]
  - Eye movement disorder [Recovering/Resolving]
  - Speech disorder [Recovering/Resolving]

NARRATIVE: CASE EVENT DATE: 20210101
